FAERS Safety Report 8962773 (Version 1)
Quarter: 2012Q4

REPORT INFORMATION
  Report Type: 
  Country: US (occurrence: US)
  Receive Date: 20121214
  Receipt Date: 20121214
  Transmission Date: 20130627
  Serious: Yes (Other)
  Sender: FDA-Public Use
  Company Number: US-ASTELLAS-2012US012132

PATIENT
  Age: 64 Year
  Sex: Male

DRUGS (1)
  1. MYCAMINE [Suspect]
     Indication: PRODUCT USED FOR UNKNOWN INDICATION
     Dosage: UNK
     Route: 065

REACTIONS (7)
  - Acute respiratory failure [Unknown]
  - Device related infection [Unknown]
  - Sepsis [Unknown]
  - Pancytopenia [Unknown]
  - Atrial fibrillation [Unknown]
  - Neutropenic sepsis [Unknown]
  - Pneumonia [Unknown]
